FAERS Safety Report 10056262 (Version 2)
Quarter: 2014Q2

REPORT INFORMATION
  Report Type: Spontaneous
  Country: FR (occurrence: FR)
  Receive Date: 20140403
  Receipt Date: 20140523
  Transmission Date: 20141212
  Serious: Yes (Hospitalization)
  Sender: FDA-Public Use
  Company Number: FR-PFIZER INC-2014092036

PATIENT
  Age: 78 Year
  Sex: Male

DRUGS (8)
  1. CORDARONE [Suspect]
     Indication: ATRIAL FIBRILLATION
     Dosage: UNK
     Route: 048
     Dates: start: 201006, end: 20121126
  2. CORDARONE [Suspect]
     Dosage: UNK
     Route: 048
     Dates: start: 201301, end: 201402
  3. ATORVASTATIN CALCIUM [Suspect]
     Indication: DYSLIPIDAEMIA
     Dosage: UNK
     Route: 048
     Dates: start: 201301
  4. PREVISCAN [Concomitant]
     Dosage: UNK
     Dates: start: 2010
  5. FUROSEMIDE [Concomitant]
     Dosage: UNK
     Dates: start: 2012
  6. ESOMEPRAZOLE [Concomitant]
     Dosage: UNK
     Dates: start: 2010
  7. ALPRAZOLAM [Concomitant]
     Dosage: UNK
     Dates: start: 201301
  8. DIGOXIN [Concomitant]
     Dosage: UNK
     Dates: start: 2010

REACTIONS (2)
  - Interstitial lung disease [Recovering/Resolving]
  - Osteoarthritis [Unknown]
